FAERS Safety Report 4647321-5 (Version None)
Quarter: 2005Q2

REPORT INFORMATION
  Report Type: 
  Country: None (occurrence: None)
  Receive Date: 20050428
  Receipt Date: 20050419
  Transmission Date: 20051028
  Serious: Yes (Hospitalization)
  Sender: FDA-Public Use
  Company Number: US-BRISTOL-MYERS SQUIBB COMPANY-12939823

PATIENT
  Age: 82 Year
  Sex: Male
  Weight: 77 kg

DRUGS (19)
  1. TAXOL [Suspect]
     Indication: PROSTATE CANCER METASTATIC
     Dosage: X 3
     Route: 042
     Dates: start: 20050414, end: 20050414
  2. PARAPLATIN [Suspect]
     Indication: PROSTATE CANCER METASTATIC
     Route: 042
     Dates: start: 20050414, end: 20050414
  3. LORTAB [Concomitant]
     Dosage: 10/500
     Route: 048
     Dates: start: 20050201
  4. MICARDIS [Concomitant]
     Route: 048
     Dates: start: 20020401
  5. LIPITOR [Concomitant]
     Route: 048
     Dates: start: 19950601
  6. FLOMAX [Concomitant]
     Route: 048
  7. ASPIRIN [Concomitant]
     Route: 048
     Dates: start: 19950601
  8. MS CONTIN [Concomitant]
     Route: 048
     Dates: start: 20040601, end: 20050407
  9. MS CONTIN [Concomitant]
     Route: 048
     Dates: start: 20050407
  10. SENOKOT [Concomitant]
     Route: 048
     Dates: start: 20040601
  11. M.V.I. [Concomitant]
     Route: 048
     Dates: start: 19950601
  12. COMPAZINE [Concomitant]
     Route: 048
     Dates: start: 20050403
  13. LUPRON [Concomitant]
     Route: 030
     Dates: start: 20050228
  14. LUPRON [Concomitant]
     Route: 030
     Dates: start: 20040212, end: 20050227
  15. ALOXI [Concomitant]
     Route: 042
     Dates: start: 20050310
  16. DECADRON [Concomitant]
     Route: 042
     Dates: start: 20050310
  17. BENADRYL [Concomitant]
     Route: 042
     Dates: start: 20050310
  18. TAGAMET [Concomitant]
     Route: 042
     Dates: start: 20050310
  19. CELEBREX [Concomitant]
     Route: 048
     Dates: start: 20050407

REACTIONS (3)
  - ABDOMINAL DISTENSION [None]
  - FLUID INTAKE REDUCED [None]
  - SOMNOLENCE [None]
